FAERS Safety Report 12282337 (Version 1)
Quarter: 2016Q2

REPORT INFORMATION
  Report Type: Spontaneous
  Country: JP (occurrence: JP)
  Receive Date: 20160419
  Receipt Date: 20160419
  Transmission Date: 20160815
  Serious: Yes (Death, Other)
  Sender: FDA-Public Use
  Company Number: JP-BAXTER-2016BAX019592

PATIENT
  Age: 15 Year
  Sex: Male

DRUGS (10)
  1. HOLOXAN [Suspect]
     Active Substance: IFOSFAMIDE
     Indication: RHABDOMYOSARCOMA
     Dosage: IE THERAPY
     Route: 042
     Dates: start: 201201
  2. ONCOVIN [Suspect]
     Active Substance: VINCRISTINE SULFATE
     Dosage: SUSBEQUENT COURSE OF CYCLICAL VDC THERAPY
     Route: 042
     Dates: start: 2012
  3. ENDOXAN 1G [Suspect]
     Active Substance: CYCLOPHOSPHAMIDE
     Indication: RHABDOMYOSARCOMA
     Dosage: CYCLICAL VDC THERAPY
     Route: 042
     Dates: start: 201201
  4. ONCOVIN [Suspect]
     Active Substance: VINCRISTINE SULFATE
     Indication: RHABDOMYOSARCOMA
     Dosage: CYCLICAL VDC THERAPY
     Route: 042
     Dates: start: 201201
  5. ADRIACIN [Suspect]
     Active Substance: DOXORUBICIN HYDROCHLORIDE
     Dosage: SUSBEQUENT COURSE OF CYCLICAL VDC THERAPY
     Route: 042
     Dates: start: 2012
  6. ENDOXAN 1G [Suspect]
     Active Substance: CYCLOPHOSPHAMIDE
     Dosage: SUSBEQUENT COURSE OF CYCLICAL VDC THERAPY
     Route: 042
     Dates: start: 2012
  7. CELLTOP 100 MG/5 ML, SOLUTION INJECTABLE POUR PERFUSION [Suspect]
     Active Substance: ETOPOSIDE
     Indication: RHABDOMYOSARCOMA
     Dosage: IE THERAPY
     Route: 042
     Dates: start: 201201
  8. ADRIACIN [Suspect]
     Active Substance: DOXORUBICIN HYDROCHLORIDE
     Indication: RHABDOMYOSARCOMA
     Dosage: CYCLICAL VDC THERAPY
     Route: 042
     Dates: start: 201201
  9. UROMITEXAN 400 MG [Suspect]
     Active Substance: MESNA
     Indication: RHABDOMYOSARCOMA
     Route: 042
     Dates: start: 201201
  10. CELLTOP 100 MG/5 ML, SOLUTION INJECTABLE POUR PERFUSION [Suspect]
     Active Substance: ETOPOSIDE
     Indication: OFF LABEL USE

REACTIONS (5)
  - Death [Fatal]
  - Depressed level of consciousness [Unknown]
  - International normalised ratio increased [Unknown]
  - Cerebral infarction [Unknown]
  - Malignant neoplasm progression [Unknown]

NARRATIVE: CASE EVENT DATE: 2012
